FAERS Safety Report 12310198 (Version 1)
Quarter: 2016Q2

REPORT INFORMATION
  Report Type: Spontaneous
  Country: US (occurrence: None)
  Receive Date: 20160426
  Receipt Date: 20160426
  Transmission Date: 20160815
  Serious: Yes (Hospitalization, Other)
  Sender: FDA-Public Use
  Company Number: None

PATIENT
  Age: 72 Year
  Weight: 108.86 kg

DRUGS (5)
  1. ATORVASTATIN [Concomitant]
     Active Substance: ATORVASTATIN
  2. SERTRALINE [Concomitant]
     Active Substance: SERTRALINE HYDROCHLORIDE
  3. FENTANYL. [Suspect]
     Active Substance: FENTANYL
     Indication: SPINAL OPERATION
     Dosage: 1 PATCH(ES) NEW EVERY 3RD DAY APPLIED AS MEDICATED PATCH TO SKIN
     Dates: start: 20160328, end: 20160408
  4. OXYCODONE/APAP [Concomitant]
     Active Substance: ACETAMINOPHEN\OXYCODONE HYDROCHLORIDE
  5. MELOXICAM. [Concomitant]
     Active Substance: MELOXICAM

REACTIONS (2)
  - Aggression [None]
  - Blood pressure increased [None]

NARRATIVE: CASE EVENT DATE: 20160407
